FAERS Safety Report 6420062-X (Version None)
Quarter: 2009Q4

REPORT INFORMATION
  Report Type: 
  Country: None (occurrence: None)
  Receive Date: 20091029
  Receipt Date: 20091020
  Transmission Date: 20100525
  Serious: Yes (Other)
  Sender: FDA-Public Use
  Company Number: US-PFIZER INC-2009287253

PATIENT
  Sex: Male
  Weight: 70.306 kg

DRUGS (2)
  1. VIAGRA [Suspect]
     Indication: ERECTILE DYSFUNCTION
     Dosage: 100 MG, AS NEEDED
  2. IBUPROFEN [Concomitant]
     Indication: MALAISE
     Dosage: FREQUENCY: AS NEEDED,

REACTIONS (8)
  - CYANOPSIA [None]
  - EYE PAIN [None]
  - EYELID OEDEMA [None]
  - GASTROENTERITIS VIRAL [None]
  - INSOMNIA [None]
  - PROSTATOMEGALY [None]
  - RHINORRHOEA [None]
  - VISION BLURRED [None]
